FAERS Safety Report 22329640 (Version 1)
Quarter: 2023Q2

REPORT INFORMATION
  Report Type: Report from Study
  Country: UY (occurrence: UY)
  Receive Date: 20230517
  Receipt Date: 20230517
  Transmission Date: 20230722
  Serious: Yes (Other)
  Sender: FDA-Public Use
  Company Number: UY-ABBVIE-4769288

PATIENT
  Age: 54 Year
  Sex: Female

DRUGS (2)
  1. RINVOQ [Suspect]
     Active Substance: UPADACITINIB
     Indication: Rheumatoid arthritis
     Dosage: FORM STRENGTH 15 MILLIGRAM
     Route: 048
     Dates: start: 20211215
  2. AVOCADO OIL\SOYBEAN OIL [Concomitant]
     Active Substance: AVOCADO OIL\SOYBEAN OIL
     Indication: Product used for unknown indication

REACTIONS (10)
  - Heavy menstrual bleeding [Not Recovered/Not Resolved]
  - Alopecia [Recovering/Resolving]
  - Urinary incontinence [Unknown]
  - Acne [Unknown]
  - Nail disorder [Recovering/Resolving]
  - Stress [Not Recovered/Not Resolved]
  - Anaemia [Recovering/Resolving]
  - Liver disorder [Unknown]
  - Dental caries [Not Recovered/Not Resolved]
  - Osteoarthritis [Not Recovered/Not Resolved]

NARRATIVE: CASE EVENT DATE: 20220901
